FAERS Safety Report 4375478-2 (Version None)
Quarter: 2004Q2

REPORT INFORMATION
  Report Type: 
  Country: None (occurrence: None)
  Receive Date: 20040607
  Receipt Date: 20040526
  Transmission Date: 20050107
  Serious: Yes (Hospitalization)
  Sender: FDA-Public Use
  Company Number: 206789

PATIENT
  Age: 78 Year
  Sex: Male

DRUGS (3)
  1. XOLAIR [Suspect]
     Indication: ASTHMA
     Dosage: SUBCUTANEOUS
     Route: 058
  2. PREDNISONE TAB [Concomitant]
  3. BETA-BLOCKER, NOS (BETA BLOCKERS NOS) [Concomitant]

REACTIONS (5)
  - ANAPHYLACTIC REACTION [None]
  - ASTHMA [None]
  - CONDITION AGGRAVATED [None]
  - CONVULSION [None]
  - FATIGUE [None]
